FAERS Safety Report 8809657 (Version 1)
Quarter: 2012Q4

REPORT INFORMATION
  Report Type: 
  Country: US (occurrence: US)
  Receive Date: 20120926
  Receipt Date: 20120926
  Transmission Date: 20130627
  Serious: No
  Sender: FDA-Public Use
  Company Number: US-MYLANLABS-2012S1008663

PATIENT
  Age: 22 Year
  Sex: Male

DRUGS (5)
  1. FLUOXETINE [Suspect]
     Indication: DEPRESSION
     Route: 048
     Dates: start: 20120406
  2. FLUOXETINE [Suspect]
     Indication: ANXIETY
     Route: 048
     Dates: start: 20120406
  3. CLONAZEPAM [Concomitant]
     Indication: DEPRESSION
     Dosage: for depression and anxiety
     Route: 048
  4. 5 HTP /00215101/ [Concomitant]
     Route: 048
  5. GABAPENTIN [Concomitant]

REACTIONS (5)
  - Suicidal ideation [Not Recovered/Not Resolved]
  - Depression [Not Recovered/Not Resolved]
  - Intentional self-injury [Not Recovered/Not Resolved]
  - Agitation [Not Recovered/Not Resolved]
  - Anxiety [Not Recovered/Not Resolved]
